FAERS Safety Report 9010073 (Version 4)
Quarter: 2013Q3

REPORT INFORMATION
  Report Type: Report from Study
  Country: FR (occurrence: FR)
  Receive Date: 20130110
  Receipt Date: 20130910
  Transmission Date: 20140515
  Serious: Yes (Death, Hospitalization, Other)
  Sender: FDA-Public Use
  Company Number: FR-MILLENNIUM PHARMACEUTICALS, INC.-2013-00142

PATIENT
  Sex: 0

DRUGS (8)
  1. VELCADE [Suspect]
     Indication: PLASMA CELL MYELOMA
     Dosage: 2.2 MG, UNK
     Route: 065
     Dates: start: 20110805, end: 20120312
  2. REVLIMID [Suspect]
     Indication: PLASMA CELL MYELOMA
     Dosage: 15 MG, UNK
     Route: 065
     Dates: start: 20110805, end: 20121202
  3. DEXAMETHASONE [Suspect]
     Indication: PLASMA CELL MYELOMA
     Dosage: 10 MG, UNK
     Route: 065
     Dates: start: 20110805, end: 20120313
  4. STILNOX                            /00914901/ [Concomitant]
     Indication: INSOMNIA
     Dosage: 10 UNK, UNK
     Route: 048
  5. INEXIUM                            /01479302/ [Concomitant]
     Indication: ABDOMINAL DISTENSION
     Dosage: 20 MG, UNK
     Route: 048
  6. CORTANCYL [Concomitant]
     Indication: PAIN
     Dosage: 60 MG, UNK
     Route: 048
  7. DEBRIDAT                           /00465202/ [Concomitant]
     Indication: ABDOMINAL DISTENSION
     Dosage: 600 MG, UNK
     Route: 048
  8. ZELITREX                           /01269701/ [Concomitant]
     Indication: PROPHYLAXIS
     Dosage: 16 UNK, UNK
     Route: 048

REACTIONS (2)
  - Plasma cell myeloma [Fatal]
  - Neoplasm malignant [Not Recovered/Not Resolved]
